FAERS Safety Report 9254473 (Version 1)
Quarter: 2013Q1

REPORT INFORMATION
  Report Type: Spontaneous
  Country: US (occurrence: None)
  Receive Date: 20121210
  Receipt Date: 20121210
  Transmission Date: 20140127
  Serious: No
  Sender: FDA-Public Use
  Company Number: 1209USA000638

PATIENT
  Age: 54 Year
  Sex: Female

DRUGS (1)
  1. ZIOPTAN [Suspect]
     Indication: GLAUCOMA
     Dosage: 1 GFT, QD, RIGHT EYE, OPHTHALMIC
     Dates: start: 20120823

REACTIONS (3)
  - Conjunctival hyperaemia [None]
  - Eye pain [None]
  - Eye pruritus [None]
